FAERS Safety Report 6307529-X (Version None)
Quarter: 2009Q3

REPORT INFORMATION
  Report Type: 
  Country: None (occurrence: None)
  Receive Date: 20090810
  Receipt Date: 20090727
  Transmission Date: 20100115
  Serious: Yes (Death, Other)
  Sender: FDA-Public Use
  Company Number: 2007-03109

PATIENT
  Age: 64 Year
  Sex: Female
  Weight: 64 kg

DRUGS (12)
  1. VELCADE [Suspect]
     Indication: MULTIPLE MYELOMA
     Dosage: 2.1 MG, INTRAVENOUS
     Route: 042
     Dates: start: 20070115, end: 20070409
  2. GANCICLOVIR [Suspect]
     Indication: DRUG USE FOR UNKNOWN INDICATION
     Dosage: 300 MG, INTRAVENOUS
     Route: 042
     Dates: start: 20070323, end: 20070329
  3. RIBAVIRIN [Suspect]
     Indication: HEPATITIS C
     Dosage: 1000 MG, ORAL
     Route: 048
     Dates: start: 20070130, end: 20070216
  4. DEXAMETHASONE [Concomitant]
  5. RED BLOOD CELLS [Concomitant]
  6. LASIX [Concomitant]
  7. PLATELETS [Concomitant]
  8. SOLDACTONE (POTASSIUM CANRENOATE) [Concomitant]
  9. REMINARON (GABEXATE MESILATE) [Concomitant]
  10. FRAGMIN (HEPARN-FRACTION MESILATE) [Concomitant]
  11. BENAMBAX (PENTAMIDINE) [Concomitant]
  12. NEUTROGIN [Concomitant]

REACTIONS (17)
  - ADENOVIRAL HAEMORRHAGIC CYSTITIS [None]
  - ANAEMIA [None]
  - ASPARTATE AMINOTRANSFERASE INCREASED [None]
  - BLOOD ALBUMIN DECREASED [None]
  - BLOOD CREATININE INCREASED [None]
  - BLOOD POTASSIUM DECREASED [None]
  - BLOOD UREA INCREASED [None]
  - BLOOD URIC ACID INCREASED [None]
  - CARDIAC FAILURE [None]
  - DISEASE PROGRESSION [None]
  - DISSEMINATED INTRAVASCULAR COAGULATION [None]
  - MULTIPLE MYELOMA [None]
  - PLATELET COUNT DECREASED [None]
  - PNEUMONIA [None]
  - PYREXIA [None]
  - SEPSIS [None]
  - WHITE BLOOD CELL COUNT DECREASED [None]
